FAERS Safety Report 21732399 (Version 2)
Quarter: 2023Q1

REPORT INFORMATION
  Report Type: Report from Study
  Country: US (occurrence: US)
  Receive Date: 20221215
  Receipt Date: 20230316
  Transmission Date: 20230417
  Serious: No
  Sender: FDA-Public Use
  Company Number: US-ABBVIE-4191764

PATIENT
  Sex: Female

DRUGS (2)
  1. SKYRIZI [Suspect]
     Active Substance: RISANKIZUMAB-RZAA
     Indication: Psoriasis
     Dosage: FORM STRENGTH: 150 MG, WEEK 4, THEN EVERY 12 WEEKS
     Route: 058
     Dates: start: 20221102
  2. SKYRIZI [Suspect]
     Active Substance: RISANKIZUMAB-RZAA
     Dosage: WEEK 0, FORM STRENGTH: 150 MG
     Route: 058
     Dates: start: 20221004, end: 20221004

REACTIONS (7)
  - Dizziness [Recovering/Resolving]
  - Arthritis [Unknown]
  - Psoriasis [Unknown]
  - Skin disorder [Unknown]
  - Depressed mood [Unknown]
  - Chills [Unknown]
  - Endodontic procedure [Unknown]

NARRATIVE: CASE EVENT DATE: 20220101
